FAERS Safety Report 12258683 (Version 2)
Quarter: 2016Q3

REPORT INFORMATION
  Report Type: Spontaneous
  Country: JP (occurrence: JP)
  Receive Date: 20160412
  Receipt Date: 20160711
  Transmission Date: 20161109
  Serious: Yes (Death)
  Sender: FDA-Public Use
  Company Number: JP-TEVA-649040ISR

PATIENT
  Age: 75 Year
  Sex: Female
  Weight: 37 kg

DRUGS (7)
  1. FENTANYL CITRATE. [Concomitant]
     Active Substance: FENTANYL CITRATE
     Dosage: 3 MILLIGRAM DAILY;
     Route: 062
     Dates: start: 20150824, end: 20150824
  2. E-FEN BUCCAL [Suspect]
     Active Substance: FENTANYL CITRATE
     Indication: BREAKTHROUGH PAIN
     Dosage: 0-200 MICROGRAM
     Route: 002
     Dates: start: 20150819, end: 20150824
  3. DIAPP [Concomitant]
     Active Substance: DIAZEPAM
     Indication: DELIRIUM
     Dosage: 10 MILLIGRAM DAILY;
     Route: 054
     Dates: start: 20150824, end: 20150824
  4. FENTANYL CITRATE. [Concomitant]
     Active Substance: FENTANYL CITRATE
     Indication: CANCER PAIN
     Dosage: 2 MILLIGRAM DAILY;
     Route: 062
     Dates: start: 20150820, end: 20150823
  5. FENTANYL CITRATE. [Concomitant]
     Active Substance: FENTANYL CITRATE
     Dosage: 5 MILLIGRAM DAILY;
     Route: 062
     Dates: start: 20150824, end: 20150825
  6. ACETAMINOPHEN. [Concomitant]
     Active Substance: ACETAMINOPHEN
     Indication: CANCER PAIN
     Route: 054
     Dates: start: 20150820, end: 20150820
  7. PATELL [Concomitant]
     Indication: CANCER PAIN
     Dosage: 1 DOSAGE FORMS DAILY;
     Route: 062
     Dates: end: 20150824

REACTIONS (1)
  - Colorectal cancer [Fatal]

NARRATIVE: CASE EVENT DATE: 20150825
